FAERS Safety Report 20527034 (Version 1)
Quarter: 2022Q1

REPORT INFORMATION
  Report Type: Spontaneous
  Country: FR (occurrence: FR)
  Receive Date: 20220228
  Receipt Date: 20220228
  Transmission Date: 20220423
  Serious: Yes (Other)
  Sender: FDA-Public Use
  Company Number: FR-SANOFI-00983812

PATIENT
  Age: 77 Year
  Sex: Male

DRUGS (3)
  1. PLAVIX [Suspect]
     Active Substance: CLOPIDOGREL BISULFATE
     Indication: Thrombosis
     Dosage: UNK
     Route: 065
  2. PLAVIX [Suspect]
     Active Substance: CLOPIDOGREL BISULFATE
     Indication: Aortic occlusion
  3. ESCITALOPRAM OXALATE [Concomitant]
     Active Substance: ESCITALOPRAM OXALATE
     Dosage: UNK
     Route: 065

REACTIONS (3)
  - Cerebrovascular accident [Unknown]
  - Cardiac disorder [Unknown]
  - Hypertension [Unknown]
